FAERS Safety Report 13872889 (Version 2)
Quarter: 2017Q4

REPORT INFORMATION
  Report Type: Spontaneous
  Country: US (occurrence: US)
  Receive Date: 20170816
  Receipt Date: 20171115
  Transmission Date: 20180320
  Serious: No
  Sender: FDA-Public Use
  Company Number: US-ASTRAZENECA-2017SE82897

PATIENT
  Age: 25016 Day
  Sex: Female
  Weight: 74.8 kg

DRUGS (8)
  1. BEVESPI AEROSPHERE [Suspect]
     Active Substance: FORMOTEROL FUMARATE\GLYCOPYRROLATE
     Indication: ASTHMA
     Dosage: 9/4.8 MICROGRAMS TWO INHALATIONS TWICE A DAY
     Route: 055
     Dates: start: 20170801
  2. BEVESPI AEROSPHERE [Suspect]
     Active Substance: FORMOTEROL FUMARATE\GLYCOPYRROLATE
     Indication: ASTHMA
     Dosage: ONE INHALATION TWICE A DAY
     Route: 055
     Dates: end: 20170810
  3. BEVESPI AEROSPHERE [Suspect]
     Active Substance: FORMOTEROL FUMARATE\GLYCOPYRROLATE
     Indication: CHRONIC OBSTRUCTIVE PULMONARY DISEASE
     Dosage: ONE INHALATION TWICE A DAY
     Route: 055
     Dates: end: 20170810
  4. BEVESPI AEROSPHERE [Suspect]
     Active Substance: FORMOTEROL FUMARATE\GLYCOPYRROLATE
     Indication: CHRONIC OBSTRUCTIVE PULMONARY DISEASE
     Dosage: 9/4.8 MICROGRAMS TWO INHALATIONS TWICE A DAY
     Route: 055
     Dates: start: 20170801
  5. CENTRUM MULTIVITAMIN [Concomitant]
     Dosage: FREQUENCY DAILY
     Route: 048
  6. BEVESPI AEROSPHERE [Suspect]
     Active Substance: FORMOTEROL FUMARATE\GLYCOPYRROLATE
     Indication: DYSPNOEA
     Dosage: 9/4.8 MICROGRAMS TWO INHALATIONS TWICE A DAY
     Route: 055
     Dates: start: 20170801
  7. BEVESPI AEROSPHERE [Suspect]
     Active Substance: FORMOTEROL FUMARATE\GLYCOPYRROLATE
     Indication: DYSPNOEA
     Dosage: ONE INHALATION TWICE A DAY
     Route: 055
     Dates: end: 20170810
  8. ASPIRIN. [Concomitant]
     Active Substance: ASPIRIN
     Route: 048

REACTIONS (7)
  - Feeling jittery [Recovered/Resolved]
  - Nightmare [Recovered/Resolved]
  - Feeling abnormal [Recovered/Resolved]
  - Off label use [Recovered/Resolved]
  - Initial insomnia [Recovered/Resolved]
  - Cough [Unknown]
  - Product use in unapproved indication [Recovered/Resolved]

NARRATIVE: CASE EVENT DATE: 20170801
